FAERS Safety Report 14054508 (Version 3)
Quarter: 2017Q4

REPORT INFORMATION
  Report Type: Report from Study
  Country: None (occurrence: CA)
  Receive Date: 20171006
  Receipt Date: 20171023
  Transmission Date: 20180321
  Serious: Yes (Hospitalization, Other)
  Sender: FDA-Public Use
  Company Number: CA-ABBVIE-17K-028-2112457-00

PATIENT
  Age: 51 Year
  Sex: Male

DRUGS (1)
  1. HUMIRA [Suspect]
     Active Substance: ADALIMUMAB
     Indication: CROHN^S DISEASE
     Route: 058
     Dates: start: 20170623

REACTIONS (9)
  - Vomiting [Recovered/Resolved]
  - Joint swelling [Not Recovered/Not Resolved]
  - Infected fistula [Not Recovered/Not Resolved]
  - Endoscopy abnormal [Not Recovered/Not Resolved]
  - Arthralgia [Not Recovered/Not Resolved]
  - Small intestinal obstruction [Unknown]
  - Underdose [Unknown]
  - Gastrointestinal disorder [Not Recovered/Not Resolved]
  - Abscess intestinal [Not Recovered/Not Resolved]

NARRATIVE: CASE EVENT DATE: 2017
